FAERS Safety Report 4344946-1 (Version None)
Quarter: 2004Q2

REPORT INFORMATION
  Report Type: 
  Country: None (occurrence: None)
  Receive Date: 20040420
  Receipt Date: 20040405
  Transmission Date: 20050107
  Serious: Yes (Hospitalization)
  Sender: FDA-Public Use
  Company Number: 2004-06769

PATIENT
  Age: 50 Year
  Sex: Male
  Weight: 77 kg

DRUGS (6)
  1. TENOFOVIR DF (TENOFOVIR DISOPROXIL FUMARATE) [Suspect]
     Indication: HIV INFECTION
     Dosage: 300 MG, ONCE A DAY, ORAL
     Route: 048
     Dates: start: 20030820, end: 20040217
  2. TENOFOVIR DF (TENOFOVIR DISOPROXIL FUMARATE) [Suspect]
     Indication: HIV INFECTION
     Dosage: 300 MG, ONCE A DAY, ORAL
     Route: 048
     Dates: start: 20040220
  3. 3TC LAMIVUDINE) [Concomitant]
  4. NELFINAVIR (NELFINAVIR) [Concomitant]
  5. CELEXA [Concomitant]
  6. LACTULOSE [Concomitant]

REACTIONS (12)
  - ANXIETY [None]
  - BLOOD MAGNESIUM DECREASED [None]
  - BLOOD PHOSPHORUS DECREASED [None]
  - BLOOD POTASSIUM DECREASED [None]
  - CANDIDIASIS [None]
  - DRUG ABUSER [None]
  - DRUG INTERACTION POTENTIATION [None]
  - DYSPHAGIA [None]
  - METABOLIC DISORDER [None]
  - ODYNOPHAGIA [None]
  - PAIN [None]
  - TREMOR [None]
